FAERS Safety Report 6169056-2 (Version None)
Quarter: 2009Q2

REPORT INFORMATION
  Report Type: 
  Country: None (occurrence: None)
  Receive Date: 20090427
  Receipt Date: 20090422
  Transmission Date: 20091009
  Serious: No
  Sender: FDA-Public Use
  Company Number: US-B.I. PHARMACEUTICALS,INC./RIDGEFIELD-2009-BP-05117BP

PATIENT
  Age: 35 Year
  Sex: Male

DRUGS (1)
  1. FLOMAX [Suspect]

REACTIONS (3)
  - EYE IRRITATION [None]
  - HEADACHE [None]
  - VISION BLURRED [None]
